FAERS Safety Report 9262638 (Version 2)
Quarter: 2013Q3

REPORT INFORMATION
  Report Type: Spontaneous
  Country: US (occurrence: US)
  Receive Date: 20130430
  Receipt Date: 20130828
  Transmission Date: 20140515
  Serious: Yes (Hospitalization)
  Sender: FDA-Public Use
  Company Number: US-INCYTE CORPORATION-2013IN000847

PATIENT
  Sex: Female

DRUGS (8)
  1. JAKAFI [Suspect]
     Indication: MYELOFIBROSIS
     Dosage: NOT SPECIFIED
     Route: 048
     Dates: start: 20121119
  2. JAKAFI [Suspect]
     Dosage: 10 MG, BID
     Route: 048
     Dates: start: 20130211, end: 201304
  3. JAKAFI [Suspect]
     Dosage: 10 MG, BID
     Route: 048
     Dates: start: 20130421
  4. LOSARTAN [Concomitant]
  5. NEXIUM [Concomitant]
  6. VITAMIN C [Concomitant]
  7. VITAMIN B [Concomitant]
  8. MULTIVITAMIN [Concomitant]

REACTIONS (1)
  - Epistaxis [Unknown]
